FAERS Safety Report 16928584 (Version 1)
Quarter: 2019Q4

REPORT INFORMATION
  Report Type: Spontaneous
  Country: US (occurrence: US)
  Receive Date: 20191017
  Receipt Date: 20191017
  Transmission Date: 20200122
  Serious: Yes (Other)
  Sender: FDA-Public Use
  Company Number: US-AMGEN INC.-USASP2019162531

PATIENT
  Age: 38 Year
  Sex: Female
  Weight: 63 kg

DRUGS (7)
  1. VITAMIN B1 [Concomitant]
     Active Substance: THIAMINE HYDROCHLORIDE
     Dosage: UNK
  2. MAGNESIUM [Concomitant]
     Active Substance: MAGNESIUM
  3. MAXALT [Concomitant]
     Active Substance: RIZATRIPTAN BENZOATE
     Dosage: UNK
  4. TORADOL [Concomitant]
     Active Substance: KETOROLAC TROMETHAMINE
     Dosage: UNK
  5. TRIPTAN [OXITRIPTAN] [Concomitant]
     Active Substance: OXITRIPTAN
     Dosage: UNK
  6. AIMOVIG [Suspect]
     Active Substance: ERENUMAB-AOOE
     Indication: MIGRAINE PROPHYLAXIS
     Dosage: UNK
     Route: 065
     Dates: start: 20180926, end: 20190321
  7. IBUPROFEN. [Concomitant]
     Active Substance: IBUPROFEN
     Dosage: UNK

REACTIONS (9)
  - Seborrhoea [Unknown]
  - Constipation [Recovered/Resolved]
  - Alopecia [Unknown]
  - Eyelid function disorder [Unknown]
  - Arthralgia [Unknown]
  - Myalgia [Unknown]
  - Ocular hyperaemia [Unknown]
  - Dry eye [Unknown]
  - Pain [Unknown]
